FAERS Safety Report 10164189 (Version 1)
Quarter: 2014Q2

REPORT INFORMATION
  Report Type: Spontaneous
  Country: US (occurrence: US)
  Receive Date: 20140510
  Receipt Date: 20140510
  Transmission Date: 20141212
  Serious: No
  Sender: FDA-Public Use
  Company Number: US-BRISTOL-MYERS SQUIBB COMPANY-20014981

PATIENT
  Age: 51 Year
  Sex: Female
  Weight: 81.63 kg

DRUGS (1)
  1. BYDUREON [Suspect]
     Indication: TYPE 2 DIABETES MELLITUS
     Route: 058
     Dates: start: 201306

REACTIONS (4)
  - Diarrhoea [Unknown]
  - Asthenia [Unknown]
  - Somnolence [Unknown]
  - Weight decreased [Unknown]
